FAERS Safety Report 22108651 (Version 1)
Quarter: 2023Q1

REPORT INFORMATION
  Report Type: Report from Study
  Country: US (occurrence: US)
  Receive Date: 20230317
  Receipt Date: 20230317
  Transmission Date: 20230417
  Serious: Yes (Death, Hospitalization, Other)
  Sender: FDA-Public Use
  Company Number: US-MYLANLABS-2023M1027952

PATIENT
  Age: 79 Year
  Sex: Male

DRUGS (15)
  1. DOXORUBICIN [Suspect]
     Active Substance: DOXORUBICIN
     Indication: Plasmablastic lymphoma
     Dosage: 8 MILLIGRAM/SQ. METER, CYCLE; RECEIVED DURING CYCLE 1
     Route: 065
  2. DOXORUBICIN [Suspect]
     Active Substance: DOXORUBICIN
     Dosage: 15 MILLIGRAM/SQ. METER, CYCLE; RECEIVED DURING CYCLES 2-4
     Route: 065
  3. DOXORUBICIN [Suspect]
     Active Substance: DOXORUBICIN
     Dosage: 10 MILLIGRAM/SQ. METER, CYCLE; RECEIVED DURING CYCLES 5-6
     Route: 065
  4. METHOTREXATE [Suspect]
     Active Substance: METHOTREXATE
     Indication: Plasmablastic lymphoma
     Dosage: 12 MILLIGRAM, CYCLE; RECEIVED DURING CYCLES 1-6
     Route: 037
  5. OXALIPLATIN [Suspect]
     Active Substance: OXALIPLATIN
     Indication: Plasmablastic lymphoma
     Dosage: 180 MILLIGRAM, QD; RECEIVED ON DAY 1
     Route: 065
  6. ETOPOSIDE [Suspect]
     Active Substance: ETOPOSIDE
     Indication: Plasmablastic lymphoma
     Dosage: 40 MILLIGRAM/SQ. METER, CYCLE; RECEIVED DURING CYCLE 1
     Route: 065
  7. ETOPOSIDE [Suspect]
     Active Substance: ETOPOSIDE
     Dosage: 75 MILLIGRAM/SQ. METER, CYCLE; RECEIVED DURING CYCLES 2-4
     Route: 065
  8. ETOPOSIDE [Suspect]
     Active Substance: ETOPOSIDE
     Dosage: 50 MILLIGRAM/SQ. METER, CYCLE; RECEIVED DURING CYCLES 5-6
     Route: 065
  9. CYTARABINE [Suspect]
     Active Substance: CYTARABINE
     Indication: Plasmablastic lymphoma
     Dosage: 1130 MILLIGRAM; RECEIVED ON DAY 2 AND DAY 3
     Route: 065
  10. VINCRISTINE [Suspect]
     Active Substance: VINCRISTINE
     Indication: Plasmablastic lymphoma
     Dosage: 0.4 MILLIGRAM/SQ. METER, CYCLE; RECEIVED DURING CYCLE 1ANDCYCLES 5-6
     Route: 065
  11. VINCRISTINE [Suspect]
     Active Substance: VINCRISTINE
     Dosage: 0.8 MILLIGRAM/SQ. METER, CYCLE; RECEIVED DURING CYCLES 2-4
     Route: 065
  12. CYCLOPHOSPHAMIDE [Suspect]
     Active Substance: CYCLOPHOSPHAMIDE
     Indication: Plasmablastic lymphoma
     Dosage: 600 MILLIGRAM/SQ. METER, CYCLE, RECEIVED DURING CYCLE 1-4
     Route: 065
  13. CYCLOPHOSPHAMIDE [Suspect]
     Active Substance: CYCLOPHOSPHAMIDE
     Dosage: 375 MILLIGRAM/SQ. METER, CYCLE; RECEIVED DURING CYCLES 5-6
     Route: 065
  14. RITUXIMAB [Suspect]
     Active Substance: RITUXIMAB
     Indication: Plasmablastic lymphoma
     Dosage: 375 MILLIGRAM/SQ. METER, CYCLE; RECEIVED DURING CYCLE 1-6
     Route: 065
  15. DARATUMUMAB [Suspect]
     Active Substance: DARATUMUMAB
     Indication: Plasmablastic lymphoma
     Dosage: 16 MILLIGRAM/KILOGRAM, CYCLE; RECEIVED ON DAY 1 AND DAY 5 DURING CYCLES 1-6
     Route: 065

REACTIONS (3)
  - Drug ineffective [Fatal]
  - Disease progression [Fatal]
  - Febrile neutropenia [Unknown]
